FAERS Safety Report 25806218 (Version 1)
Quarter: 2025Q3

REPORT INFORMATION
  Report Type: Spontaneous
  Country: US (occurrence: US)
  Receive Date: 20250916
  Receipt Date: 20250916
  Transmission Date: 20251020
  Serious: Yes (Life-Threatening, Hospitalization, Other)
  Sender: ACCORD
  Company Number: US-MLMSERVICE-20240404-PI013714-00200-1

PATIENT
  Age: 22 Year
  Sex: Male

DRUGS (4)
  1. LEVOTHYROXINE [Suspect]
     Active Substance: LEVOTHYROXINE
     Indication: Autoimmune thyroiditis
     Route: 048
  2. INSULIN NOS [Concomitant]
     Active Substance: INSULIN NOS
     Indication: Type 1 diabetes mellitus
  3. LACOSAMIDE [Concomitant]
     Active Substance: LACOSAMIDE
     Indication: Epilepsy
  4. LEVOTHYROXINE [Suspect]
     Active Substance: LEVOTHYROXINE
     Indication: Autoimmune thyroiditis
     Route: 048

REACTIONS (6)
  - Hyperthyroidism [Recovering/Resolving]
  - Thyrotoxic crisis [Recovering/Resolving]
  - Multiple organ dysfunction syndrome [Recovering/Resolving]
  - Accidental overdose [Unknown]
  - Incorrect dose administered [Unknown]
  - Seizure [Recovering/Resolving]
